FAERS Safety Report 19039017 (Version 4)
Quarter: 2021Q2

REPORT INFORMATION
  Report Type: Report from Study
  Country: US (occurrence: US)
  Receive Date: 20210322
  Receipt Date: 20210525
  Transmission Date: 20210717
  Serious: Yes (Death, Hospitalization, Other)
  Sender: FDA-Public Use
  Company Number: US-GLAXOSMITHKLINE-US2020AMR077825

PATIENT
  Age: 66 Year
  Sex: Female

DRUGS (9)
  1. NIRAPARIB [Suspect]
     Active Substance: NIRAPARIB
     Dosage: 200 MG, QD
     Dates: start: 20210303
  2. NIRAPARIB [Suspect]
     Active Substance: NIRAPARIB
     Indication: MALIGNANT PERITONEAL NEOPLASM
     Dosage: 300 MG, QD
     Dates: start: 20200702, end: 20200708
  3. NIRAPARIB [Suspect]
     Active Substance: NIRAPARIB
     Dosage: 200 MG, QD
  4. NIRAPARIB [Suspect]
     Active Substance: NIRAPARIB
     Dosage: 200 MG, QD
     Dates: start: 20200911
  5. NIRAPARIB [Suspect]
     Active Substance: NIRAPARIB
     Dosage: 200 MG, QD
  6. NIRAPARIB [Suspect]
     Active Substance: NIRAPARIB
     Dosage: 200 MG, QD
     Dates: end: 20210228
  7. NIRAPARIB [Suspect]
     Active Substance: NIRAPARIB
     Indication: RETROPERITONEAL CANCER
     Dosage: 300 MG, QD
     Dates: start: 20200429, end: 20200702
  8. NIRAPARIB [Suspect]
     Active Substance: NIRAPARIB
     Dosage: 200 MG, QD
     Route: 048
     Dates: end: 20210412
  9. NIRAPARIB [Suspect]
     Active Substance: NIRAPARIB
     Dosage: 300 MG, QD
     Dates: start: 20200709

REACTIONS (23)
  - Asthenia [Unknown]
  - Death [Fatal]
  - Vomiting [Recovering/Resolving]
  - Anxiety [Recovered/Resolved]
  - Joint injury [Recovered/Resolved]
  - Product use in unapproved indication [Unknown]
  - Meniscus injury [Recovering/Resolving]
  - Dry mouth [Unknown]
  - Diarrhoea [Recovered/Resolved]
  - Nodule [Recovering/Resolving]
  - Blood glucose increased [Recovering/Resolving]
  - Fatigue [Unknown]
  - Dysphagia [Not Recovered/Not Resolved]
  - Joint swelling [Recovered/Resolved]
  - White blood cell count decreased [Recovering/Resolving]
  - Constipation [Recovered/Resolved]
  - Loss of personal independence in daily activities [Unknown]
  - Anaemia [Unknown]
  - Retching [Recovering/Resolving]
  - Contusion [Recovered/Resolved]
  - Nausea [Recovered/Resolved]
  - Dyspnoea [Unknown]
  - Carbohydrate antigen 125 increased [Not Recovered/Not Resolved]

NARRATIVE: CASE EVENT DATE: 20210228
